FAERS Safety Report 5739237-8 (Version None)
Quarter: 2008Q2

REPORT INFORMATION
  Report Type: 
  Country: None (occurrence: None)
  Receive Date: 20080515
  Receipt Date: 20080513
  Transmission Date: 20081010
  Serious: Yes (Hospitalization)
  Sender: FDA-Public Use
  Company Number: FR-WYE-G01525308

PATIENT
  Sex: Male

DRUGS (9)
  1. TAZOCILLINE [Suspect]
     Route: 042
     Dates: start: 20080222, end: 20080320
  2. COAPROVEL [Concomitant]
     Dosage: UNKNOWN
     Route: 048
     Dates: start: 20080226, end: 20080410
  3. PLAVIX [Concomitant]
     Dosage: UNKNOWN
     Route: 048
     Dates: start: 20080307, end: 20080310
  4. ZYVOX [Concomitant]
     Dosage: UNKNOWN
     Dates: start: 20080222, end: 20080304
  5. ASPIRIN [Concomitant]
     Dosage: UNKNOWN
     Route: 048
     Dates: start: 20080307, end: 20080410
  6. ACETAMINOPHEN [Concomitant]
     Dosage: UNKNOWN
     Route: 042
     Dates: start: 20080314, end: 20080319
  7. LYRICA [Concomitant]
     Route: 048
     Dates: start: 20080303, end: 20080324
  8. LOVENOX [Concomitant]
     Route: 058
     Dates: start: 20080222, end: 20080409
  9. CIPROFLOXACIN HCL [Concomitant]
     Dosage: UNKNOWN
     Route: 048
     Dates: start: 20080305, end: 20080328

REACTIONS (1)
  - LYMPHOPENIA [None]
